FAERS Safety Report 25104877 (Version 1)
Quarter: 2025Q1

REPORT INFORMATION
  Report Type: Spontaneous
  Country: US (occurrence: None)
  Receive Date: 20250321
  Receipt Date: 20250321
  Transmission Date: 20250408
  Serious: Yes (Hospitalization)
  Sender: FDA-CTU
  Company Number: None

PATIENT
  Age: 69 Year
  Sex: Female
  Weight: 75.9 kg

DRUGS (1)
  1. TAXOL [Suspect]
     Active Substance: PACLITAXEL

REACTIONS (8)
  - Abdominal tenderness [None]
  - Skin warm [None]
  - Erythema [None]
  - Abdominal pain [None]
  - Skin weeping [None]
  - Abdominal hernia [None]
  - International normalised ratio increased [None]
  - Large intestine perforation [None]

NARRATIVE: CASE EVENT DATE: 20210124
